FAERS Safety Report 9778444 (Version 1)
Quarter: 2013Q4

REPORT INFORMATION
  Report Type: Spontaneous
  Country: US (occurrence: None)
  Receive Date: 20131220
  Receipt Date: 20131220
  Transmission Date: 20140711
  Serious: Yes (Other)
  Sender: FDA-Public Use
  Company Number: None

PATIENT
  Sex: Female
  Weight: 83.46 kg

DRUGS (1)
  1. CYMBALTA [Suspect]
     Indication: ARTHRITIS
     Dates: start: 2013

REACTIONS (2)
  - Haematoma [None]
  - Disseminated intravascular coagulation [None]
